FAERS Safety Report 8188396-9 (Version None)
Quarter: 2012Q1

REPORT INFORMATION
  Report Type: 
  Country: None (occurrence: None)
  Receive Date: 20120306
  Receipt Date: 20120227
  Transmission Date: 20120608
  Serious: Yes (Hospitalization, Other)
  Sender: FDA-Public Use
  Company Number: PHHY2012BR018160

PATIENT
  Sex: Female
  Weight: 67 kg

DRUGS (1)
  1. EXFORGE [Suspect]
     Indication: HYPERTENSION
     Dosage: 1 TABLET A DAY
     Route: 048

REACTIONS (9)
  - PNEUMONIA [None]
  - RENAL FAILURE [None]
  - COUGH [None]
  - LUMBAR VERTEBRAL FRACTURE [None]
  - BACK PAIN [None]
  - NERVOUSNESS [None]
  - BRONCHITIS [None]
  - NERVOUS SYSTEM DISORDER [None]
  - FALL [None]
